APPROVED DRUG PRODUCT: ANEXSIA
Active Ingredient: ACETAMINOPHEN; HYDROCODONE BITARTRATE
Strength: 750MG;10MG
Dosage Form/Route: TABLET;ORAL
Application: A040468 | Product #001
Applicant: MALLINCKRODT INC
Approved: Oct 31, 2002 | RLD: No | RS: No | Type: DISCN